FAERS Safety Report 7556306-0 (Version None)
Quarter: 2011Q2

REPORT INFORMATION
  Report Type: 
  Country: None (occurrence: None)
  Receive Date: 20110620
  Receipt Date: 20110617
  Transmission Date: 20111010
  Serious: Yes (Other)
  Sender: FDA-Public Use
  Company Number: US-PFIZER INC-2011134208

PATIENT
  Sex: Female
  Weight: 81.633 kg

DRUGS (8)
  1. CHANTIX [Suspect]
     Indication: SMOKING CESSATION THERAPY
     Dosage: 0.5 MG, 1X/DAY
     Route: 048
  2. CITALOPRAM [Concomitant]
     Indication: MULTIPLE SCLEROSIS
     Dosage: UNK
  3. PROMETHAZINE [Concomitant]
     Indication: MULTIPLE SCLEROSIS
     Dosage: UNK
  4. GABAPENTIN [Concomitant]
     Indication: MULTIPLE SCLEROSIS
     Dosage: UNK
  5. HYDROCODONE [Concomitant]
     Indication: MULTIPLE SCLEROSIS
     Dosage: UNK
  6. ZOLPIDEM [Concomitant]
     Indication: SLEEP DISORDER
     Dosage: UNK
  7. CHANTIX [Suspect]
     Dosage: UNK
     Route: 048
     Dates: start: 20110101, end: 20110101
  8. INDOMETHACIN [Concomitant]
     Dosage: UNK

REACTIONS (1)
  - MIGRAINE [None]
